FAERS Safety Report 11460795 (Version 3)
Quarter: 2015Q4

REPORT INFORMATION
  Report Type: Report from Study
  Country: DE (occurrence: DE)
  Receive Date: 20150904
  Receipt Date: 20151113
  Transmission Date: 20160304
  Serious: Yes (Hospitalization)
  Sender: FDA-Public Use
  Company Number: DE-ABBVIE-15K-062-1454202-00

PATIENT
  Age: 74 Year
  Sex: Female
  Weight: 77 kg

DRUGS (11)
  1. HUMIRA [Suspect]
     Active Substance: ADALIMUMAB
     Indication: RHEUMATOID ARTHRITIS
     Route: 058
     Dates: start: 20100809
  2. METHOTREXATE [Concomitant]
     Active Substance: METHOTREXATE
     Indication: PRODUCT USED FOR UNKNOWN INDICATION
  3. HUMIRA [Suspect]
     Active Substance: ADALIMUMAB
     Route: 058
     Dates: start: 20140918, end: 20150511
  4. EXFORGE HCT [Concomitant]
     Active Substance: AMLODIPINE BESYLATE\HYDROCHLOROTHIAZIDE\VALSARTAN
     Indication: PRODUCT USED FOR UNKNOWN INDICATION
     Dosage: DOSE 5/25
  5. RINGER SOLUTION [Concomitant]
     Indication: PRODUCT USED FOR UNKNOWN INDICATION
     Route: 042
  6. NOVALGIN [Concomitant]
     Active Substance: METAMIZOLE SODIUM
     Indication: PRODUCT USED FOR UNKNOWN INDICATION
  7. MONO EMBOLEX [Concomitant]
     Active Substance: CERTOPARIN SODIUM
     Indication: PRODUCT USED FOR UNKNOWN INDICATION
     Route: 058
  8. TAVOR EXPEDIT [Concomitant]
     Indication: PRODUCT USED FOR UNKNOWN INDICATION
  9. DIPIDOLOR [Concomitant]
     Active Substance: PIRITRAMIDE
     Indication: ANALGESIC THERAPY
     Route: 042
  10. BISOPROLOL [Concomitant]
     Active Substance: BISOPROLOL
     Indication: PRODUCT USED FOR UNKNOWN INDICATION
  11. FOLSAN [Concomitant]
     Active Substance: FOLIC ACID
     Indication: PRODUCT USED FOR UNKNOWN INDICATION

REACTIONS (36)
  - Aortic arteriosclerosis [Unknown]
  - Gastritis erosive [Unknown]
  - Gastric mucosal hypertrophy [Unknown]
  - Neuroendocrine carcinoma [Unknown]
  - Flank pain [Not Recovered/Not Resolved]
  - Abdominal discomfort [Unknown]
  - General physical health deterioration [Unknown]
  - Hepatic steatosis [Unknown]
  - Tumour lysis syndrome [Unknown]
  - Hepatic pain [Unknown]
  - Intestinal fibrosis [Unknown]
  - Abdominal pain upper [Unknown]
  - Metastases to liver [Unknown]
  - Gastric mucosa erythema [Unknown]
  - Small cell lung cancer metastatic [Unknown]
  - Metaplasia [Unknown]
  - Spinal osteoarthritis [Unknown]
  - Cholecystitis [Unknown]
  - Hepatic cancer metastatic [Not Recovered/Not Resolved]
  - Abdominal pain [Not Recovered/Not Resolved]
  - Renal cyst [Unknown]
  - Reactive gastropathy [Unknown]
  - Hiatus hernia [Unknown]
  - Diverticulum intestinal [Unknown]
  - Gastric haemorrhage [Unknown]
  - Hepatic neoplasm [Unknown]
  - Vomiting [Unknown]
  - Hiatus hernia [Unknown]
  - Oedema mucosal [Unknown]
  - Duodenitis [Unknown]
  - Metastatic pain [Unknown]
  - Biliary colic [Not Recovered/Not Resolved]
  - Nutritional condition abnormal [Unknown]
  - Pancreatic steatosis [Unknown]
  - Duodenitis [Unknown]
  - Mucosal ulceration [Unknown]

NARRATIVE: CASE EVENT DATE: 2015
